FAERS Safety Report 6709438-0 (Version None)
Quarter: 2010Q2

REPORT INFORMATION
  Report Type: 
  Country: None (occurrence: None)
  Receive Date: 20100429
  Receipt Date: 20100423
  Transmission Date: 20101027
  Serious: Yes (Death)
  Sender: FDA-Public Use
  Company Number: 2010JP001133

PATIENT
  Age: 14 Year
  Sex: Female
  Weight: 39 kg

DRUGS (2)
  1. PROGRAF [Suspect]
     Indication: BONE MARROW TRANSPLANT
     Dosage: 1MG, UID/QD/IV NOS
     Route: 042
     Dates: start: 20070301, end: 20070330
  2. CYTARABINE [Concomitant]

REACTIONS (6)
  - ACUTE RESPIRATORY FAILURE [None]
  - CARDIAC ARREST [None]
  - CONDITION AGGRAVATED [None]
  - HAEMOPTYSIS [None]
  - PULMONARY HAEMORRHAGE [None]
  - PULMONARY MYCOSIS [None]
